FAERS Safety Report 8760940 (Version 2)
Quarter: 2012Q4

REPORT INFORMATION
  Report Type: 
  Country: GB (occurrence: GB)
  Receive Date: 20120830
  Receipt Date: 20121001
  Transmission Date: 20130627
  Serious: Yes (Disabling, Other)
  Sender: FDA-Public Use
  Company Number: PHFR2012GB004716

PATIENT
  Age: 10 Year
  Sex: Male
  Weight: 39 kg

DRUGS (2)
  1. METHYLPHENIDATE [Suspect]
     Indication: ATTENTION DEFICIT/HYPERACTIVITY DISORDER
     Dosage: 20 mg, TID
     Route: 048
     Dates: start: 2006, end: 201006
  2. EQUASYM XL [Suspect]
     Indication: ATTENTION DEFICIT/HYPERACTIVITY DISORDER
     Dosage: 20 mg or 30 mg
     Dates: start: 20100602

REACTIONS (1)
  - Alopecia universalis [Not Recovered/Not Resolved]
